FAERS Safety Report 4490623-6 (Version None)
Quarter: 2004Q4

REPORT INFORMATION
  Report Type: 
  Country: None (occurrence: None)
  Receive Date: 20041028
  Receipt Date: 20041022
  Transmission Date: 20050328
  Serious: Yes (Death, Hospitalization)
  Sender: FDA-Public Use
  Company Number: 209864

PATIENT
  Age: 67 Year
  Sex: Male

DRUGS (2)
  1. RAPTIVA [Suspect]
     Indication: PSORIASIS
     Dosage: SUBCUTANEOUS
     Route: 058
     Dates: start: 20040301, end: 20040922
  2. UVB (PHOTOTHERAPY UVB) [Concomitant]

REACTIONS (11)
  - CARDIAC VALVE VEGETATION [None]
  - DISORIENTATION [None]
  - DYSPNOEA [None]
  - HYPOTENSION [None]
  - INTESTINAL POLYP [None]
  - MYOCARDIAL INFARCTION [None]
  - PULMONARY OEDEMA [None]
  - REFUSAL OF TREATMENT BY PATIENT [None]
  - STREPTOCOCCAL SEPSIS [None]
  - SYNCOPE [None]
  - THERAPEUTIC RESPONSE DECREASED [None]
